FAERS Safety Report 12128914 (Version 1)
Quarter: 2016Q1

REPORT INFORMATION
  Report Type: Other
  Country: US (occurrence: US)
  Receive Date: 20160229
  Receipt Date: 20160229
  Transmission Date: 20160526
  Serious: No
  Sender: FDA-Public Use
  Company Number: US-ACORDA-ACO_119358_2015

PATIENT
  Age: 60 Year

DRUGS (1)
  1. AMPYRA [Suspect]
     Active Substance: DALFAMPRIDINE
     Indication: MULTIPLE SCLEROSIS
     Dosage: 10 MG, BID
     Route: 048
     Dates: start: 20151002

REACTIONS (6)
  - T-lymphocyte count decreased [Unknown]
  - CD4 lymphocyte percentage decreased [Unknown]
  - B-lymphocyte count decreased [Unknown]
  - CD8 lymphocytes increased [Unknown]
  - CD4/CD8 ratio decreased [Unknown]
  - CD4 lymphocytes decreased [Unknown]

NARRATIVE: CASE EVENT DATE: 20151029
